FAERS Safety Report 4908957-7 (Version None)
Quarter: 2006Q1

REPORT INFORMATION
  Report Type: 
  Country: None (occurrence: None)
  Receive Date: 20060209
  Receipt Date: 20060130
  Transmission Date: 20060701
  Serious: Yes (Death)
  Sender: FDA-Public Use
  Company Number: 2006-US-00503

PATIENT
  Age: 66 Year
  Sex: Male

DRUGS (2)
  1. CLOZAPINE [Suspect]
     Indication: PARKINSON'S DISEASE
     Dosage: 25 MG, QD, ORAL
     Route: 048
     Dates: start: 20051101, end: 20051201
  2. CLOZAPINE [Suspect]
     Indication: PSYCHOTIC DISORDER
     Dosage: 25 MG, QD, ORAL
     Route: 048
     Dates: start: 20051101, end: 20051201

REACTIONS (1)
  - CEREBROVASCULAR ACCIDENT [None]
